FAERS Safety Report 6370775-3 (Version None)
Quarter: 2009Q3

REPORT INFORMATION
  Report Type: 
  Country: None (occurrence: None)
  Receive Date: 20090923
  Receipt Date: 20070606
  Transmission Date: 20100115
  Serious: No
  Sender: FDA-Public Use
  Company Number: US-ASTRAZENECA-2006UW24903

PATIENT
  Age: 38 Year
  Sex: Female
  Weight: 97.1 kg

DRUGS (14)
  1. SEROQUEL [Suspect]
     Dosage: 100 - 200 MG
     Route: 048
     Dates: start: 20040101
  2. SEROQUEL [Suspect]
     Route: 048
     Dates: start: 20051115
  3. LORTAB [Concomitant]
     Indication: ENDOMETRIOSIS
     Dosage: 15 - 100 MG DAILY
  4. ELAVIL [Concomitant]
     Indication: PAIN
     Dosage: 25 - 50 MG AT NIGHT
  5. COGENTIN [Concomitant]
  6. BUSPAR [Concomitant]
  7. CATAFLAM [Concomitant]
  8. SKELAXIN [Concomitant]
     Indication: MUSCLE SPASMS
     Dosage: 800 MG HALF TABLET 3 TO 4 TIMES A DAY AS NEEDED
     Route: 048
  9. TYLENOL (CAPLET) [Concomitant]
     Indication: HEADACHE
     Route: 048
  10. ADVIL [Concomitant]
  11. DARVOCET [Concomitant]
     Indication: PAIN
     Dosage: 1 - 2 TABLETS EVERY 6 HOURS AS REQUIRED
  12. KLONOPIN [Concomitant]
  13. VALIUM [Concomitant]
     Route: 048
  14. MOTRIN [Concomitant]
     Dates: start: 20070309

REACTIONS (3)
  - BLOOD GLUCOSE ABNORMAL [None]
  - BLOOD GLUCOSE INCREASED [None]
  - DIABETES MELLITUS [None]
